FAERS Safety Report 6988693-6 (Version None)
Quarter: 2010Q3

REPORT INFORMATION
  Report Type: 
  Country: None (occurrence: None)
  Receive Date: 20100916
  Receipt Date: 20100908
  Transmission Date: 20110219
  Serious: Yes (Hospitalization, Other)
  Sender: FDA-Public Use
  Company Number: US-ELI_LILLY_AND_COMPANY-US201009002223

PATIENT
  Age: 71 Year
  Sex: Female

DRUGS (3)
  1. HUMALOG [Suspect]
     Dosage: UNK, AS NEEDED
  2. LANTUS [Concomitant]
  3. NOVOLOG [Concomitant]

REACTIONS (5)
  - ADVERSE DRUG REACTION [None]
  - FALL [None]
  - LOSS OF CONSCIOUSNESS [None]
  - VASCULAR GRAFT [None]
  - VISION BLURRED [None]
